FAERS Safety Report 19191583 (Version 1)
Quarter: 2021Q2

REPORT INFORMATION
  Report Type: Spontaneous
  Country: US (occurrence: US)
  Receive Date: 20210428
  Receipt Date: 20210428
  Transmission Date: 20210717
  Serious: No
  Sender: FDA-Public Use
  Company Number: US-ANIPHARMA-2020-US-012282

PATIENT
  Sex: Male

DRUGS (1)
  1. PROPRANOLOL EXTENDED RELEASE CAPSULES (NON?SPECIFIC) [Suspect]
     Active Substance: PROPRANOLOL HYDROCHLORIDE
     Indication: HYPERTENSION
     Route: 048
     Dates: end: 20200611

REACTIONS (1)
  - Drug effect less than expected [Unknown]
